FAERS Safety Report 18700400 (Version 1)
Quarter: 2021Q1

REPORT INFORMATION
  Report Type: Spontaneous
  Country: US (occurrence: US)
  Receive Date: 20210104
  Receipt Date: 20210104
  Transmission Date: 20210419
  Serious: No
  Sender: FDA-Public Use
  Company Number: None

PATIENT
  Age: 71 Year
  Sex: Male
  Weight: 79.2 kg

DRUGS (4)
  1. EZITIMIBE [Concomitant]
     Active Substance: EZETIMIBE
  2. RESUVASTATIN [Concomitant]
  3. CENTRUM SENIOR [Concomitant]
  4. CASIRIVIMAB AND IMDEVIMAB [Suspect]
     Active Substance: CASIRIVIMAB\IMDEVIMAB
     Indication: COVID-19
     Route: 042
     Dates: start: 20201231, end: 20201231

REACTIONS (3)
  - Hyperhidrosis [None]
  - Body temperature increased [None]
  - Chills [None]

NARRATIVE: CASE EVENT DATE: 20201231
